FAERS Safety Report 15905091 (Version 1)
Quarter: 2019Q1

REPORT INFORMATION
  Report Type: Spontaneous
  Country: FR (occurrence: FR)
  Receive Date: 20190204
  Receipt Date: 20190204
  Transmission Date: 20190417
  Serious: Yes (Hospitalization)
  Sender: FDA-Public Use
  Company Number: FR-ACCORD-105772

PATIENT
  Age: 66 Year
  Sex: Female
  Weight: 64 kg

DRUGS (3)
  1. DOCETAXEL. [Suspect]
     Active Substance: DOCETAXEL
     Indication: BREAST CANCER
     Dosage: STRENGTH 160 MG / 8 ML
     Route: 041
  2. HERCEPTIN [Suspect]
     Active Substance: TRASTUZUMAB
     Indication: BREAST CANCER
     Route: 041
  3. MEDROL [Suspect]
     Active Substance: METHYLPREDNISOLONE
     Indication: ADJUVANT THERAPY
     Dosage: STRENGTH 100 MG
     Route: 048
     Dates: start: 20180208, end: 20180210

REACTIONS (3)
  - Hyponatraemia [Recovered/Resolved]
  - Oral infection [Recovered/Resolved]
  - Dizziness [Recovered/Resolved]

NARRATIVE: CASE EVENT DATE: 20180216
